FAERS Safety Report 16090879 (Version 2)
Quarter: 2019Q1

REPORT INFORMATION
  Report Type: Spontaneous
  Country: BR (occurrence: BR)
  Receive Date: 20190319
  Receipt Date: 20190319
  Transmission Date: 20190418
  Serious: Yes (Other)
  Sender: FDA-Public Use
  Company Number: PHHY2019BR056733

PATIENT
  Age: 21 Year
  Sex: Male

DRUGS (3)
  1. REVOLADE [Suspect]
     Active Substance: ELTROMBOPAG
     Indication: APLASTIC ANAEMIA
     Dosage: UNK
     Route: 065
  2. REVOLADE [Suspect]
     Active Substance: ELTROMBOPAG
     Dosage: REDUCED TO 50 PERCENTAGE FROM THE PREVIOUS DOSE
     Route: 065
  3. CICLOSPORIN [Suspect]
     Active Substance: CYCLOSPORINE
     Indication: APLASTIC ANAEMIA
     Route: 065

REACTIONS (10)
  - Platelet count decreased [Unknown]
  - Lymphopenia [Unknown]
  - Pyrexia [Unknown]
  - Haematotoxicity [Unknown]
  - Nasopharyngitis [Unknown]
  - Product use in unapproved indication [Unknown]
  - Bone marrow disorder [Unknown]
  - Haematoma [Unknown]
  - Neutropenia [Unknown]
  - Febrile neutropenia [Unknown]
